FAERS Safety Report 7400987-9 (Version None)
Quarter: 2011Q2

REPORT INFORMATION
  Report Type: 
  Country: None (occurrence: None)
  Receive Date: 20110407
  Receipt Date: 20110325
  Transmission Date: 20111010
  Serious: Yes (Other)
  Sender: FDA-Public Use
  Company Number: PHHY2011US25050

PATIENT
  Sex: Female

DRUGS (10)
  1. PROZAC [Concomitant]
     Dosage: UNK
  2. VITAMIN D [Concomitant]
     Dosage: UNK
  3. PLAVIX [Concomitant]
     Dosage: UNK
  4. VICODIN [Concomitant]
     Dosage: UNK
  5. LASIX [Concomitant]
     Dosage: UNK
  6. FAMPRIDINE [Concomitant]
     Dosage: UNK
  7. VALIUM [Concomitant]
     Dosage: UNK
  8. LECITHIN [Concomitant]
     Dosage: UNK
  9. LOVAZA [Concomitant]
     Dosage: UNK
  10. GILENYA [Suspect]
     Indication: MULTIPLE SCLEROSIS
     Dosage: 0.5 MG, QD
     Route: 048
     Dates: start: 20110315

REACTIONS (9)
  - TREMOR [None]
  - CHEST PAIN [None]
  - DRUG INTERACTION [None]
  - AMNESIA [None]
  - FEELING ABNORMAL [None]
  - DYSPNOEA [None]
  - ABDOMINAL DISCOMFORT [None]
  - CONSTIPATION [None]
  - HEADACHE [None]
